FAERS Safety Report 19923872 (Version 1)
Quarter: 2021Q4

REPORT INFORMATION
  Report Type: Spontaneous
  Country: CN (occurrence: CN)
  Receive Date: 20211005
  Receipt Date: 20211005
  Transmission Date: 20220303
  Serious: Yes (Hospitalization)
  Sender: FDA-Public Use
  Company Number: CN-BAXTER-2021BAX030993

PATIENT
  Age: 72 Year
  Sex: Male
  Weight: 58 kg

DRUGS (12)
  1. CYCLOPHOSPHAMIDE [Suspect]
     Active Substance: CYCLOPHOSPHAMIDE
     Indication: Marginal zone lymphoma
     Dosage: 0.9% SODIUM CHLORIDE INJECTION 500 ML + CYCLOPHOSPHAMIDE FOR INJECTION (IMPORTED) 1000 MG IVGTT ONCE
     Route: 041
     Dates: start: 20210813, end: 20210813
  2. CYCLOPHOSPHAMIDE [Suspect]
     Active Substance: CYCLOPHOSPHAMIDE
     Dosage: DOSE RE-INTRODUCED?0.9% SODIUM CHLORIDE INJECTION+ CYCLOPHOSPHAMIDE FOR INJECTION
     Route: 041
  3. DEXTROSE [Suspect]
     Active Substance: DEXTROSE
     Indication: Medication dilution
     Dosage: GLUCOSE INJECTION 100 ML + PIRARUBICIN HYDROCHLORIDE FOR INJECTION 30 MG IVGTT ONCE,
     Route: 041
     Dates: start: 20210813
  4. DEXTROSE [Suspect]
     Active Substance: DEXTROSE
     Dosage: GLUCOSE INJECTION + PIRARUBICIN HYDROCHLORIDE FOR INJECTION?DOSE RE-INTRODUCED
     Route: 041
  5. SODIUM CHLORIDE [Suspect]
     Active Substance: SODIUM CHLORIDE
     Indication: Medication dilution
     Dosage: VINCRISTINE SULFATE FOR INJECTION 2 MG + SODIUM CHLORIDE INJECTION 180 MG IVGTT ONCE,
     Route: 041
     Dates: start: 20210813
  6. SODIUM CHLORIDE [Suspect]
     Active Substance: SODIUM CHLORIDE
     Dosage: VINCRISTINE SULFATE FOR INJECTION + SODIUM CHLORIDE INJECTION?DOSE RE-INTRODUCED
     Route: 041
  7. SODIUM CHLORIDE [Suspect]
     Active Substance: SODIUM CHLORIDE
     Dosage: 0.9% SODIUM CHLORIDE INJECTION 500 ML + CYCLOPHOSPHAMIDE FOR INJECTION (IMPORTED) 1000 MG IVGTT ONCE
     Route: 041
     Dates: start: 20210813
  8. SODIUM CHLORIDE [Suspect]
     Active Substance: SODIUM CHLORIDE
     Dosage: 0.9% SODIUM CHLORIDE INJECTION + CYCLOPHOSPHAMIDE FOR INJECTION (IMPORTED)?DOSE RE-INTRODUCED
     Route: 041
  9. VINCRISTINE SULFATE [Suspect]
     Active Substance: VINCRISTINE SULFATE
     Indication: Marginal zone lymphoma
     Dosage: VINCRISTINE SULFATE FOR INJECTION 2 MG + SODIUM CHLORIDE INJECTION 180 MG IVGTT ONCE,
     Route: 042
     Dates: start: 20210813, end: 20210920
  10. VINCRISTINE SULFATE [Suspect]
     Active Substance: VINCRISTINE SULFATE
     Dosage: VINCRISTINE SULFATE FOR INJECTION+ SODIUM CHLORIDE INJECTION ?DOSE RE-INTRODUCED
     Route: 042
  11. PIRARUBICIN HYDROCHLORIDE [Suspect]
     Active Substance: PIRARUBICIN HYDROCHLORIDE
     Indication: Marginal zone lymphoma
     Route: 041
     Dates: start: 20210813, end: 20210813
  12. PIRARUBICIN HYDROCHLORIDE [Suspect]
     Active Substance: PIRARUBICIN HYDROCHLORIDE
     Dosage: DOSE RE-INTRODUCED
     Route: 041

REACTIONS (1)
  - Myelosuppression [Recovering/Resolving]

NARRATIVE: CASE EVENT DATE: 20210908
